FAERS Safety Report 6045576-6 (Version None)
Quarter: 2009Q1

REPORT INFORMATION
  Report Type: 
  Country: None (occurrence: None)
  Receive Date: 20090121
  Receipt Date: 20090113
  Transmission Date: 20090719
  Serious: Yes (Hospitalization)
  Sender: FDA-Public Use
  Company Number: US-ASTRAZENECA-2009UW01104

PATIENT
  Age: 80 Year
  Sex: Male
  Weight: 98 kg

DRUGS (8)
  1. PRILOSEC [Suspect]
     Route: 048
     Dates: start: 19990101
  2. LISINOPRIL [Concomitant]
  3. IRON SUPPLEMENT [Concomitant]
     Dosage: 3 DAILY
  4. VITAMIN D [Concomitant]
  5. ASCORBIC ACID [Concomitant]
  6. MULTI-VITAMIN [Concomitant]
  7. LIPITOR [Concomitant]
  8. FOLIC ACID [Concomitant]

REACTIONS (2)
  - ANAEMIA [None]
  - HAEMORRHAGE [None]
